FAERS Safety Report 7676177-1 (Version None)
Quarter: 2011Q3

REPORT INFORMATION
  Report Type: 
  Country: None (occurrence: None)
  Receive Date: 20110811
  Receipt Date: 20110804
  Transmission Date: 20111222
  Serious: Yes (Death)
  Sender: FDA-Public Use
  Company Number: JP-JNJFOC-20110800738

PATIENT
  Age: 88 Year
  Sex: Female

DRUGS (6)
  1. NAUZELIN [Concomitant]
     Route: 065
  2. DIAPP [Concomitant]
     Route: 065
  3. FENTANYL CITRATE [Suspect]
     Indication: CANCER PAIN
     Route: 062
  4. FENTANYL CITRATE [Suspect]
     Indication: SEDATION
     Route: 062
  5. PREDNISOLONE [Concomitant]
     Route: 065
  6. LENDORMIN [Concomitant]
     Route: 048

REACTIONS (4)
  - OXYGEN SATURATION DECREASED [None]
  - OFF LABEL USE [None]
  - BLOOD PRESSURE DECREASED [None]
  - HEPATIC CIRRHOSIS [None]
